FAERS Safety Report 8280700 (Version 8)
Quarter: 2014Q1

REPORT INFORMATION
  Report Type: Report from Study
  Country: JP (occurrence: JP)
  Receive Date: 20111208
  Receipt Date: 20140106
  Transmission Date: 20141002
  Serious: Yes (Death, Life-Threatening, Hospitalization, Other)
  Sender: FDA-Public Use
  Company Number: GB-GILEAD-2011-0047898

PATIENT
  Age: 56 Year
  Sex: Female
  Weight: 35 kg

DRUGS (45)
  1. AMBRISENTAN [Suspect]
     Indication: PULMONARY ARTERIAL HYPERTENSION
     Dosage: 5MG PER DAY
     Route: 048
     Dates: start: 20110118, end: 20110508
  2. FLOLAN [Suspect]
     Indication: PULMONARY ARTERIAL HYPERTENSION
     Dosage: UNK
     Route: 042
     Dates: start: 2008
  3. FLOLAN [Suspect]
     Dosage: 32NG/KG/MIN
     Route: 042
     Dates: start: 200812
  4. FLOLAN [Suspect]
     Dosage: UNK
     Route: 042
  5. FLOLAN [Suspect]
     Dosage: UNK
     Route: 042
  6. FLOLAN [Suspect]
     Dosage: 88NG/KG/MIN
     Route: 042
     Dates: start: 201101
  7. FLOLAN [Suspect]
     Dosage: UNK
     Route: 042
     Dates: end: 20110207
  8. FLOLAN [Suspect]
     Dosage: UNK
     Route: 042
     Dates: start: 20110208, end: 20110314
  9. FLOLAN [Suspect]
     Dosage: UNK
     Route: 042
     Dates: start: 20110315, end: 20110509
  10. FLOLAN [Suspect]
     Dosage: UNK
     Route: 042
  11. FLOLAN [Suspect]
     Dosage: UNK
  12. ASPIRIN [Concomitant]
     Dosage: 1IUAX PER DAY
     Route: 048
  13. ASPIRIN [Concomitant]
     Dosage: 1IUAX PER DAY
     Route: 048
  14. ASPIRIN [Concomitant]
     Dosage: 1IUAX PER DAY
     Route: 048
  15. METILDIGOXIN [Concomitant]
     Dosage: 1IUAX PER DAY
     Route: 048
  16. METILDIGOXIN [Concomitant]
     Dosage: 1IUAX PER DAY
     Route: 048
  17. METILDIGOXIN [Concomitant]
     Dosage: 1IUAX PER DAY
     Route: 048
  18. METILDIGOXIN [Concomitant]
     Route: 048
     Dates: end: 20110508
  19. FUROSEMIDE [Concomitant]
     Dosage: 40MG PER DAY
     Route: 048
  20. FUROSEMIDE [Concomitant]
     Dosage: 40MG PER DAY
     Route: 048
  21. FUROSEMIDE [Concomitant]
     Dosage: 40MG PER DAY
     Route: 048
  22. FUROSEMIDE [Concomitant]
     Route: 048
     Dates: end: 20110508
  23. SPIRONOLACTONE [Concomitant]
     Dosage: 25MG PER DAY
     Route: 048
  24. SPIRONOLACTONE [Concomitant]
     Dosage: 25MG PER DAY
     Route: 048
  25. SPIRONOLACTONE [Concomitant]
     Dosage: 25MG PER DAY
     Route: 048
  26. DENOPAMINE [Concomitant]
     Dosage: 40MG PER DAY
     Route: 048
  27. DENOPAMINE [Concomitant]
     Dosage: 40MG PER DAY
     Route: 048
  28. DENOPAMINE [Concomitant]
     Dosage: 40MG PER DAY
     Route: 048
  29. PIMOBENDAN [Concomitant]
     Dosage: 5MG PER DAY
     Route: 048
  30. PIMOBENDAN [Concomitant]
     Dosage: 5MG PER DAY
     Route: 048
  31. PIMOBENDAN [Concomitant]
     Dosage: 5MG PER DAY
     Route: 048
  32. PIMOBENDAN [Concomitant]
     Route: 048
     Dates: end: 20110508
  33. TADALAFIL [Concomitant]
     Route: 048
  34. TADALAFIL [Concomitant]
     Route: 048
  35. TADALAFIL [Concomitant]
     Route: 048
  36. BAYASPIRIN [Concomitant]
     Route: 048
     Dates: end: 20110508
  37. ALDACTONE A [Concomitant]
     Route: 048
     Dates: end: 20110508
  38. KALGUT [Concomitant]
     Route: 048
     Dates: end: 20110508
  39. ADCIRCA [Concomitant]
     Indication: PULMONARY ARTERIAL HYPERTENSION
     Route: 048
     Dates: start: 20110223, end: 20110508
  40. TAKEPRON [Concomitant]
     Route: 048
     Dates: end: 20110508
  41. FLUITRAN [Concomitant]
     Route: 048
     Dates: end: 20110508
  42. MYONAL                             /00287502/ [Concomitant]
     Route: 048
     Dates: end: 20110508
  43. MYSLEE [Concomitant]
     Route: 048
     Dates: end: 20110508
  44. PLAVIX [Concomitant]
     Route: 048
     Dates: start: 20110120, end: 20110508
  45. POTASSIUM [Concomitant]
     Route: 048
     Dates: end: 20110508

REACTIONS (15)
  - Hepatic function abnormal [Fatal]
  - Dilatation ventricular [Unknown]
  - Pulmonary hypertension [Unknown]
  - Cardiac murmur [Unknown]
  - Breath sounds abnormal [Unknown]
  - Oedema peripheral [Unknown]
  - Sinus rhythm [Unknown]
  - Bundle branch block right [Unknown]
  - Electrocardiogram ST segment depression [Unknown]
  - Cardiac failure [Unknown]
  - Coronary artery stenosis [Unknown]
  - Pulmonary artery dilatation [Unknown]
  - Coronary artery disease [Unknown]
  - Pneumonia [Unknown]
  - Pulmonary alveolar haemorrhage [Not Recovered/Not Resolved]
